FAERS Safety Report 9767999 (Version 1)
Quarter: 2013Q4

REPORT INFORMATION
  Report Type: Spontaneous
  Country: US (occurrence: None)
  Receive Date: 20131217
  Receipt Date: 20131217
  Transmission Date: 20140711
  Serious: Yes (Other)
  Sender: FDA-Public Use
  Company Number: 2012BAX007502

PATIENT
  Age: 55 Year
  Sex: Female
  Weight: 62 kg

DRUGS (2)
  1. GAMMAGARD LIQUID (IMMUNOGLOBULIN, NORMAL HUMAN) (SOLUTION FOR INFUSION) [Suspect]
     Indication: CHRONIC INFLAMMATORY DEMYELINATING POLYRADICULONEUROPATHY
     Dosage: 4.1667 GM (25 GM, DAILY FOR FIVE DAYS EVERY   MONTH), INTRAVENOUS (NOT OTHERWISE SPECIFIED)? ? ?
  2. GAMMAGARD LIQUID (IMMUNOGLOBULIN, NORMAL HUMAN) (SOLUTION FOR INFUSION) [Suspect]
     Indication: OFF LABEL USE
     Dosage: 4.1667 GM (25 GM, DAILY FOR FIVE DAYS EVERY   MONTH), INTRAVENOUS (NOT OTHERWISE SPECIFIED)? ? ?

REACTIONS (4)
  - Headache [None]
  - Diarrhoea [None]
  - Nausea [None]
  - Pyrexia [None]
